FAERS Safety Report 5745090-9 (Version None)
Quarter: 2008Q2

REPORT INFORMATION
  Report Type: 
  Country: None (occurrence: None)
  Receive Date: 20080521
  Receipt Date: 20080515
  Transmission Date: 20081010
  Serious: Yes (Other)
  Sender: FDA-Public Use
  Company Number: US-AVENTIS-200813076US

PATIENT
  Age: 28 Year
  Sex: Female

DRUGS (1)
  1. LANTUS [Suspect]
     Dosage: DOSE: 20 UNITS AT LUNCH TIME AND 5 UNITS AT MIDNIGHT
     Dates: start: 20060701

REACTIONS (1)
  - ECTOPIC PREGNANCY [None]
